FAERS Safety Report 8231050-5 (Version None)
Quarter: 2012Q1

REPORT INFORMATION
  Report Type: 
  Country: None (occurrence: None)
  Receive Date: 20120323
  Receipt Date: 20120312
  Transmission Date: 20120608
  Serious: Yes (Other)
  Sender: FDA-Public Use
  Company Number: CA-JNJFOC-20111210502

PATIENT
  Sex: Female
  Weight: 94 kg

DRUGS (10)
  1. ASACOL [Concomitant]
     Route: 065
  2. MULTI-VITAMINS [Concomitant]
     Route: 065
  3. ASPIRIN [Concomitant]
     Route: 065
  4. ALL OTHER THERAPEUTICS [Concomitant]
     Route: 065
  5. CRESTOR [Concomitant]
     Route: 065
  6. EFFEXOR [Concomitant]
     Route: 065
  7. REMICADE [Suspect]
     Indication: COLITIS ULCERATIVE
     Dosage: 30 INFUSIONS TOTAL
     Route: 042
  8. NITROGLYCERIN [Concomitant]
     Route: 065
  9. PERINDOPRIL ERBUMINE [Concomitant]
     Route: 065
  10. OMEGA 3-6-9 [Concomitant]

REACTIONS (1)
  - BENIGN BREAST NEOPLASM [None]
